FAERS Safety Report 21872907 (Version 1)
Quarter: 2023Q1

REPORT INFORMATION
  Report Type: Spontaneous
  Country: US (occurrence: None)
  Receive Date: 20230115
  Receipt Date: 20230115
  Transmission Date: 20230418
  Serious: Yes (Hospitalization)
  Sender: FDA-Public Use
  Company Number: None

PATIENT
  Age: 46 Year
  Sex: Female
  Weight: 72 kg

DRUGS (16)
  1. ENBREL [Suspect]
     Active Substance: ETANERCEPT
     Indication: Rheumatoid arthritis
     Dates: start: 20131215, end: 20140415
  2. HYDROCORTISONE [Concomitant]
     Active Substance: HYDROCORTISONE
  3. RINVOQ [Concomitant]
     Active Substance: UPADACITINIB
  4. LIOTHYRONINE [Concomitant]
     Active Substance: LIOTHYRONINE
  5. LEVOTHYROXINE [Concomitant]
     Active Substance: LEVOTHYROXINE
  6. LITHIUM [Concomitant]
     Active Substance: LITHIUM
  7. HYDROXYCHLOROQUINE SULFATE [Concomitant]
     Active Substance: HYDROXYCHLOROQUINE SULFATE
  8. VALTREX [Concomitant]
     Active Substance: VALACYCLOVIR HYDROCHLORIDE
  9. TRAMADOL [Concomitant]
     Active Substance: TRAMADOL
  10. FLUDROCORTISONE [Concomitant]
     Active Substance: FLUDROCORTISONE
  11. Vitamins A [Concomitant]
  12. Vitamins D [Concomitant]
  13. Vitamins E [Concomitant]
  14. KAVA [Concomitant]
     Active Substance: PIPER METHYSTICUM ROOT
  15. DIM [Concomitant]
  16. PROBIOTICS NOS [Concomitant]
     Active Substance: PROBIOTICS NOS

REACTIONS (2)
  - Endometriosis [None]
  - Nail bed bleeding [None]

NARRATIVE: CASE EVENT DATE: 20140507
